FAERS Safety Report 23031941 (Version 1)
Quarter: 2023Q4

REPORT INFORMATION
  Report Type: Report from Study
  Country: US (occurrence: US)
  Receive Date: 20231005
  Receipt Date: 20231005
  Transmission Date: 20240109
  Serious: Yes (Hospitalization, Other)
  Sender: FDA-Public Use
  Company Number: US-PFIZER INC-202200275233

PATIENT
  Age: 74 Year
  Sex: Male

DRUGS (1)
  1. LYRICA [Suspect]
     Active Substance: PREGABALIN
     Indication: Product used for unknown indication
     Dosage: UNK
     Route: 065

REACTIONS (10)
  - Cystitis [Unknown]
  - Drug dependence [Unknown]
  - Neuropathy peripheral [Unknown]
  - Dementia [Unknown]
  - Memory impairment [Unknown]
  - Pain [Unknown]
  - Muscle spasms [Unknown]
  - Burning sensation [Unknown]
  - Spinal pain [Unknown]
  - Herpes zoster [Unknown]

NARRATIVE: CASE EVENT DATE: 20120704
